FAERS Safety Report 18901040 (Version 2)
Quarter: 2021Q2

REPORT INFORMATION
  Report Type: Spontaneous
  Country: US (occurrence: US)
  Receive Date: 20210217
  Receipt Date: 20210518
  Transmission Date: 20210717
  Serious: No
  Sender: FDA-Public Use
  Company Number: US-CELLTRION INC.-2021US001594

PATIENT

DRUGS (2)
  1. TRUXIMA [Suspect]
     Active Substance: RITUXIMAB-ABBS
     Indication: PROTEINURIA
  2. TRUXIMA [Suspect]
     Active Substance: RITUXIMAB-ABBS
     Indication: NEPHRITIC SYNDROME
     Dosage: 893 MG FREQUENCY D1, 8, 15, 22, V2.0.; SCHEDULED INFUSION ON 15MAR2021

REACTIONS (1)
  - Off label use [Unknown]
